FAERS Safety Report 8262523-7 (Version None)
Quarter: 2012Q2

REPORT INFORMATION
  Report Type: 
  Country: None (occurrence: None)
  Receive Date: 20120405
  Receipt Date: 20120323
  Transmission Date: 20120825
  Serious: Yes (Other)
  Sender: FDA-Public Use
  Company Number: JP-MYLANLABS-2012S1003178

PATIENT
  Age: 35 Year
  Sex: Male
  Weight: 130 kg

DRUGS (4)
  1. VANCOMYCIN [Suspect]
     Route: 041
     Dates: start: 20120120, end: 20120120
  2. VANCOMYCIN [Suspect]
     Route: 041
     Dates: start: 20120121, end: 20120129
  3. VANCOMYCIN [Suspect]
     Indication: STAPHYLOCOCCAL INFECTION
     Route: 041
     Dates: start: 20120119, end: 20120119
  4. VANCOMYCIN [Suspect]

REACTIONS (3)
  - HEPATIC FUNCTION ABNORMAL [None]
  - ERYTHEMA MULTIFORME [None]
  - RENAL IMPAIRMENT [None]
